FAERS Safety Report 4561648-7 (Version None)
Quarter: 2005Q1

REPORT INFORMATION
  Report Type: 
  Country: None (occurrence: None)
  Receive Date: 20050121
  Receipt Date: 20050113
  Transmission Date: 20050727
  Serious: Yes (Hospitalization)
  Sender: FDA-Public Use
  Company Number: 2004UW24885

PATIENT
  Age: 62 Year
  Sex: Male
  Weight: 81.6475 kg

DRUGS (6)
  1. SEROQUEL [Suspect]
     Indication: BIPOLAR DISORDER
     Dosage: 200 MG DAILY PO
     Route: 048
     Dates: start: 20041107
  2. SEROQUEL [Suspect]
     Indication: DEPRESSED MOOD
     Dosage: 200 MG DAILY PO
     Route: 048
     Dates: start: 20041107
  3. INSULIN [Suspect]
     Indication: DIABETES MELLITUS
  4. PARNATE [Concomitant]
  5. LISINOPRIL [Concomitant]
  6. RISPERDAL [Concomitant]

REACTIONS (2)
  - HYPOGLYCAEMIA [None]
  - LOSS OF CONSCIOUSNESS [None]
